FAERS Safety Report 16346315 (Version 2)
Quarter: 2019Q2

REPORT INFORMATION
  Report Type: Spontaneous
  Country: US (occurrence: US)
  Receive Date: 20190523
  Receipt Date: 20190603
  Transmission Date: 20190711
  Serious: No
  Sender: FDA-Public Use
  Company Number: US-PFIZER INC-2019056462

PATIENT
  Age: 77 Year
  Sex: Female

DRUGS (6)
  1. ADVIL [IBUPROFEN] [Concomitant]
     Active Substance: IBUPROFEN
     Dosage: 200 MG, UNK
  2. SOMAVERT [Suspect]
     Active Substance: PEGVISOMANT
     Indication: GIGANTISM
  3. GAVISCON [ALGELDRATE;SODIUM ALGINATE] [Concomitant]
     Dosage: UNK(105-160)
  4. PRILOSEC [Concomitant]
     Active Substance: OMEPRAZOLE MAGNESIUM
     Dosage: 20 MG, UNK
  5. SOMAVERT [Suspect]
     Active Substance: PEGVISOMANT
     Indication: ACROMEGALY
     Dosage: 30 MG, WEEKLY [ONCE A WEEK]
     Route: 058
     Dates: start: 20190222
  6. NASACORT [Concomitant]
     Active Substance: TRIAMCINOLONE ACETONIDE
     Dosage: 55 UG, UNK

REACTIONS (8)
  - Insulin-like growth factor increased [Unknown]
  - Influenza like illness [Unknown]
  - Product use issue [Unknown]
  - Flatulence [Unknown]
  - Off label use [Unknown]
  - Malaise [Unknown]
  - Eructation [Unknown]
  - Sinus disorder [Unknown]

NARRATIVE: CASE EVENT DATE: 20190428
